FAERS Safety Report 6195381-5 (Version None)
Quarter: 2009Q2

REPORT INFORMATION
  Report Type: 
  Country: None (occurrence: None)
  Receive Date: 20090515
  Receipt Date: 20090504
  Transmission Date: 20091009
  Serious: No
  Sender: FDA-Public Use
  Company Number: 229475

PATIENT
  Age: 79 Year
  Sex: Female
  Weight: 58 kg

DRUGS (3)
  1. ROCURONIUM BROMIDE [Suspect]
     Indication: DRUG USE FOR UNKNOWN INDICATION
     Dates: start: 20090330, end: 20090330
  2. (NEOSTIGMINE) [Concomitant]
  3. ROBINUL [Concomitant]

REACTIONS (4)
  - ASTHENIA [None]
  - DRUG EFFECT PROLONGED [None]
  - MENTAL STATUS CHANGES [None]
  - RESPIRATORY RATE INCREASED [None]
